FAERS Safety Report 6651474-7 (Version None)
Quarter: 2010Q1

REPORT INFORMATION
  Report Type: 
  Country: None (occurrence: None)
  Receive Date: 20100325
  Receipt Date: 20100316
  Transmission Date: 20100710
  Serious: Yes (Hospitalization)
  Sender: FDA-Public Use
  Company Number: JP-JNJFOC-20080901131

PATIENT
  Sex: Male
  Weight: 68 kg

DRUGS (8)
  1. REMICADE [Suspect]
     Indication: CROHN'S DISEASE
     Dosage: 10 INFUSIONS ON UNKNOWN DATES
     Route: 042
  2. REMICADE [Suspect]
     Route: 042
  3. REMICADE [Suspect]
     Dosage: 12TH INFUSION
     Route: 042
  4. PENTASA [Concomitant]
     Indication: CROHN'S DISEASE
     Route: 048
  5. BIO-THREE [Concomitant]
     Indication: CROHN'S DISEASE
     Dosage: DOSE: 6 TAB
     Route: 048
  6. CEREKINON [Concomitant]
     Indication: CROHN'S DISEASE
     Route: 048
  7. LEVOFLOXACIN [Concomitant]
     Dosage: DOSE: 3 TAB
     Route: 048
  8. LOXONIN [Concomitant]
     Dosage: DOSE: 3 TAB
     Route: 048

REACTIONS (3)
  - DIARRHOEA [None]
  - DISSEMINATED TUBERCULOSIS [None]
  - HEADACHE [None]
